FAERS Safety Report 10933107 (Version 1)
Quarter: 2015Q1

REPORT INFORMATION
  Report Type: Report from Study
  Country: NZ (occurrence: NZ)
  Receive Date: 20150320
  Receipt Date: 20150320
  Transmission Date: 20150721
  Serious: Yes (Other)
  Sender: FDA-Public Use
  Company Number: NZ-009507513-1503NZL009256

PATIENT
  Age: 53 Year
  Sex: Female

DRUGS (5)
  1. METHOTREXATE [Suspect]
     Active Substance: METHOTREXATE
     Dosage: 5 MG, UNK
     Dates: start: 201411
  2. PROZAC [Suspect]
     Active Substance: FLUOXETINE HYDROCHLORIDE
     Indication: PRODUCT USED FOR UNKNOWN INDICATION
  3. FOSAMAX [Suspect]
     Active Substance: ALENDRONATE SODIUM
     Indication: OSTEOARTHRITIS
     Route: 048
  4. HUMIRA [Suspect]
     Active Substance: ADALIMUMAB
     Indication: RHEUMATOID ARTHRITIS
     Dosage: 40 MG, QOW
  5. METHOTREXATE [Suspect]
     Active Substance: METHOTREXATE
     Indication: PRODUCT USED FOR UNKNOWN INDICATION
     Dosage: UNK
     Dates: end: 201411

REACTIONS (19)
  - Stress [Unknown]
  - Back pain [Unknown]
  - Gastrooesophageal reflux disease [Unknown]
  - Lumbar vertebral fracture [Unknown]
  - Depression [Unknown]
  - Pain [Unknown]
  - Anxiety [Unknown]
  - Arthralgia [Unknown]
  - Spinal disorder [Unknown]
  - Nerve compression [Unknown]
  - Spinal compression fracture [Unknown]
  - Pain in extremity [Unknown]
  - Osteoarthritis [Unknown]
  - Gait disturbance [Unknown]
  - Pain in extremity [Unknown]
  - Weight increased [Unknown]
  - Intervertebral disc protrusion [Unknown]
  - General physical health deterioration [Unknown]
  - Arthralgia [Unknown]

NARRATIVE: CASE EVENT DATE: 2014
